FAERS Safety Report 8564545-5 (Version None)
Quarter: 2012Q3

REPORT INFORMATION
  Report Type: 
  Country: None (occurrence: None)
  Receive Date: 20120727
  Receipt Date: 20120727
  Transmission Date: 20120928
  Serious: Yes (Hospitalization)
  Sender: FDA-Public Use
  Company Number: None

PATIENT
  Age: 4 Year
  Sex: Female
  Weight: 14.6 kg

DRUGS (8)
  1. KEPPRA [Concomitant]
  2. ACETEMINOPHEN [Concomitant]
  3. BEVACIZUMAB [Suspect]
     Indication: GLIOMA
     Dosage: 10MG/KG/IV EVERY 14 DAYS
     Dates: start: 20120607, end: 20120719
  4. MIRALAX [Concomitant]
  5. LIDOCAINE [Concomitant]
  6. SENNA-MINT WAF [Concomitant]
  7. BACTRIM [Concomitant]
  8. COLACE [Concomitant]

REACTIONS (9)
  - HYPOVOLAEMIA [None]
  - TACHYCARDIA [None]
  - MOANING [None]
  - IRRITABILITY [None]
  - SPEECH DISORDER [None]
  - HYPERTENSION [None]
  - CEREBRAL VENTRICLE DILATATION [None]
  - HYDROCEPHALUS [None]
  - MENTAL STATUS CHANGES [None]
